FAERS Safety Report 25963987 (Version 1)
Quarter: 2025Q4

REPORT INFORMATION
  Report Type: Report from Study
  Country: US (occurrence: US)
  Receive Date: 20251027
  Receipt Date: 20251027
  Transmission Date: 20260119
  Serious: Yes (Hospitalization)
  Sender: IPSEN BIOPHARMACEUTICALS, INC.
  Company Number: US-IPSEN Group, Research and Development-2024-13214

PATIENT
  Age: 69 Year
  Sex: Male
  Weight: 82.8 kg

DRUGS (6)
  1. ONIVYDE [Suspect]
     Active Substance: IRINOTECAN HYDROCHLORIDE
     Indication: Colorectal cancer metastatic
     Dosage: EVERY 2 WEEKS, 28 DAY CYCLE
     Route: 042
     Dates: start: 20240514, end: 20240611
  2. LONSURF [Suspect]
     Active Substance: TIPIRACIL HYDROCHLORIDE\TRIFLURIDINE
     Indication: Colorectal cancer metastatic
     Dosage: STRENGTH: 20-8.19 MILLIGRAMS?DOSE: 80-32.76 MILLIGRAMS, TWICE DAILY DAYS 1-5 AND 15-19
     Route: 048
     Dates: start: 20240514, end: 20240616
  3. BEVACIZUMAB [Suspect]
     Active Substance: BEVACIZUMAB
     Indication: Colorectal cancer metastatic
     Dosage: EVERY 2 WEEKS, 28 DAY CYCLE
     Route: 042
     Dates: start: 20240514, end: 20240611
  4. NORVASC [Concomitant]
     Active Substance: AMLODIPINE BESYLATE
  5. POTASSIUM CHLORIDE [Concomitant]
     Active Substance: POTASSIUM CHLORIDE
  6. NEULASTA [Concomitant]
     Active Substance: PEGFILGRASTIM

REACTIONS (1)
  - Anorectal infection [Recovering/Resolving]

NARRATIVE: CASE EVENT DATE: 20240619
